FAERS Safety Report 12047493 (Version 2)
Quarter: 2016Q1

REPORT INFORMATION
  Report Type: Spontaneous
  Country: US (occurrence: US)
  Receive Date: 20160208
  Receipt Date: 20160303
  Transmission Date: 20160526
  Serious: No
  Sender: FDA-Public Use
  Company Number: US-PFIZER INC-2016071693

PATIENT
  Age: 70 Year
  Sex: Male
  Weight: 86 kg

DRUGS (1)
  1. VIAGRA [Suspect]
     Active Substance: SILDENAFIL CITRATE
     Indication: SEXUAL DYSFUNCTION
     Dosage: 100 MG, UNK (TAKING VIAGRA BY CUTTING THE PILLS IN HALF ABOUT 4-5 YEARS AGO)

REACTIONS (2)
  - Drug intolerance [Recovered/Resolved]
  - Intentional product use issue [Unknown]
